FAERS Safety Report 23721770 (Version 6)
Quarter: 2024Q2

REPORT INFORMATION
  Report Type: Spontaneous
  Country: US (occurrence: US)
  Receive Date: 20240409
  Receipt Date: 20240627
  Transmission Date: 20240715
  Serious: No
  Sender: FDA-Public Use
  Company Number: US-BRISTOL-MYERS SQUIBB COMPANY-2024-055234

PATIENT
  Age: 60 Year
  Sex: Female

DRUGS (5)
  1. ORENCIA [Suspect]
     Active Substance: ABATACEPT
     Indication: Rheumatoid arthritis
     Route: 058
     Dates: start: 202402
  2. ORENCIA [Suspect]
     Active Substance: ABATACEPT
     Route: 058
     Dates: start: 202402
  3. ORENCIA [Suspect]
     Active Substance: ABATACEPT
     Route: 058
     Dates: start: 202402
  4. TERIPARATIDE [Suspect]
     Active Substance: TERIPARATIDE
     Indication: Product used for unknown indication
     Dosage: PEN
  5. FORTEO [Concomitant]
     Active Substance: TERIPARATIDE
     Indication: Product used for unknown indication
     Dosage: DELIVERY DEVICE

REACTIONS (10)
  - Injection site bruising [Unknown]
  - Fatigue [Unknown]
  - Loss of therapeutic response [Unknown]
  - Dizziness [Unknown]
  - Joint swelling [Unknown]
  - Arthralgia [Unknown]
  - Contusion [Unknown]
  - Cough [Unknown]
  - Oropharyngeal pain [Unknown]
  - Acne [Unknown]
